FAERS Safety Report 17444917 (Version 1)
Quarter: 2020Q1

REPORT INFORMATION
  Report Type: Spontaneous
  Country: GB (occurrence: GB)
  Receive Date: 20200221
  Receipt Date: 20200221
  Transmission Date: 20200409
  Serious: Yes (Other)
  Sender: FDA-Public Use
  Company Number: GB-MYLANLABS-2020M1018190

PATIENT
  Age: 59 Year
  Sex: Male
  Weight: 95.2 kg

DRUGS (1)
  1. DOXYCYCLINE. [Suspect]
     Active Substance: DOXYCYCLINE
     Indication: LOWER RESPIRATORY TRACT INFECTION
     Dosage: 100 MILLIGRAM, QOD
     Route: 048

REACTIONS (1)
  - Onychalgia [Recovering/Resolving]

NARRATIVE: CASE EVENT DATE: 20191209
